FAERS Safety Report 20771370 (Version 2)
Quarter: 2022Q2

REPORT INFORMATION
  Report Type: Spontaneous
  Country: US (occurrence: US)
  Receive Date: 20220429
  Receipt Date: 20220527
  Transmission Date: 20220721
  Serious: Yes (Other)
  Sender: FDA-Public Use
  Company Number: US-NOVEN PHARMACEUTICALS, INC.-2022-NOV-US000378

PATIENT
  Sex: Female

DRUGS (2)
  1. COMBIPATCH [Suspect]
     Active Substance: ESTRADIOL\NORETHINDRONE ACETATE
     Indication: Artificial menopause
     Dosage: 0.05/0.14 MG, UNKNOWN
     Route: 062
     Dates: start: 2020
  2. COMBIPATCH [Suspect]
     Active Substance: ESTRADIOL\NORETHINDRONE ACETATE
     Indication: Off label use
     Dosage: 0.05/0.14 MG, UNKNOWN
     Route: 062
     Dates: start: 2017, end: 2019

REACTIONS (8)
  - Hernia repair [Unknown]
  - Application site erythema [Not Recovered/Not Resolved]
  - Application site pruritus [Not Recovered/Not Resolved]
  - Application site discolouration [Not Recovered/Not Resolved]
  - Application site irritation [Not Recovered/Not Resolved]
  - Product storage error [Not Recovered/Not Resolved]
  - Recalled product administered [Not Recovered/Not Resolved]
  - Off label use [Not Recovered/Not Resolved]

NARRATIVE: CASE EVENT DATE: 20170101
